FAERS Safety Report 17422921 (Version 1)
Quarter: 2020Q1

REPORT INFORMATION
  Report Type: Spontaneous
  Country: RU (occurrence: RU)
  Receive Date: 20200216
  Receipt Date: 20200216
  Transmission Date: 20200409
  Serious: Yes (Other)
  Sender: FDA-Public Use
  Company Number: NVSC2020RU041745

PATIENT
  Age: 45 Year
  Sex: Male

DRUGS (2)
  1. METHOTREXATE EBEWE [METHOTREXATE SODIUM] [Suspect]
     Active Substance: METHOTREXATE SODIUM
     Dosage: 10 MG, QW
     Route: 048
  2. METHOTREXATE EBEWE [METHOTREXATE SODIUM] [Suspect]
     Active Substance: METHOTREXATE SODIUM
     Indication: PSORIASIS
     Dosage: 15 MG, QW
     Route: 048
     Dates: start: 20190610

REACTIONS (1)
  - Muscle spasms [Not Recovered/Not Resolved]

NARRATIVE: CASE EVENT DATE: 20190712
